FAERS Safety Report 16608259 (Version 1)
Quarter: 2019Q3

REPORT INFORMATION
  Report Type: Spontaneous
  Country: US (occurrence: US)
  Receive Date: 20190606
  Receipt Date: 20190606
  Transmission Date: 20191004
  Serious: No
  Sender: FDA-Public Use
  Company Number: None

PATIENT
  Age: 61 Year
  Sex: Female

DRUGS (1)
  1. ENTECAVIR 0.5MG TAB (X30) [Suspect]
     Active Substance: ENTECAVIR
     Dates: start: 201901

REACTIONS (6)
  - Product taste abnormal [None]
  - Therapy cessation [None]
  - Urticaria [None]
  - Dysgeusia [None]
  - Rash generalised [None]
  - Product substitution issue [None]

NARRATIVE: CASE EVENT DATE: 20190606
